FAERS Safety Report 5857977-7 (Version None)
Quarter: 2008Q3

REPORT INFORMATION
  Report Type: 
  Country: None (occurrence: None)
  Receive Date: 20080826
  Receipt Date: 20080818
  Transmission Date: 20090109
  Serious: Yes (Other)
  Sender: FDA-Public Use
  Company Number: BE-AVENTIS-200817885GDDC

PATIENT
  Age: 70 Year
  Sex: Male
  Weight: 95 kg

DRUGS (6)
  1. TAVANIC [Suspect]
     Route: 048
     Dates: start: 20080730, end: 20080804
  2. FLAGYL [Suspect]
     Route: 048
     Dates: start: 20080730
  3. HYPAN [Concomitant]
     Route: 048
     Dates: start: 20050101
  4. SYMBICORT [Concomitant]
     Route: 055
     Dates: start: 20060101
  5. SPIRIVA [Concomitant]
     Route: 055
     Dates: start: 20070101
  6. SERLAIN                            /01011401/ [Concomitant]
     Indication: DEPRESSION
     Route: 048
     Dates: start: 20070101

REACTIONS (1)
  - TENDONITIS [None]
